FAERS Safety Report 24220870 (Version 3)
Quarter: 2024Q3

REPORT INFORMATION
  Report Type: Report from Study
  Country: US (occurrence: US)
  Receive Date: 20240819
  Receipt Date: 20240903
  Transmission Date: 20241017
  Serious: Yes (Hospitalization, Other)
  Sender: ABBVIE
  Company Number: US-ABBVIE-5882059

PATIENT
  Age: 62 Year
  Sex: Female

DRUGS (1)
  1. VENCLEXTA [Suspect]
     Active Substance: VENETOCLAX
     Indication: Acute myeloid leukaemia
     Route: 048
     Dates: start: 202408

REACTIONS (12)
  - Neutropenia [Unknown]
  - Dyspepsia [Unknown]
  - Pyrexia [Unknown]
  - Fatigue [Unknown]
  - Transfusion [Unknown]
  - Platelet count abnormal [Recovering/Resolving]
  - Stomatitis [Unknown]
  - White blood cell count decreased [Unknown]
  - Haemoglobin decreased [Unknown]
  - Asthenia [Recovering/Resolving]
  - Diarrhoea [Unknown]
  - Brain fog [Unknown]

NARRATIVE: CASE EVENT DATE: 20240801
